FAERS Safety Report 4974020-2 (Version None)
Quarter: 2006Q2

REPORT INFORMATION
  Report Type: 
  Country: None (occurrence: None)
  Receive Date: 20060410
  Receipt Date: 20060330
  Transmission Date: 20061013
  Serious: Yes (Death, Hospitalization)
  Sender: FDA-Public Use
  Company Number: B0419258A

PATIENT
  Age: 30 Year
  Sex: Male

DRUGS (2)
  1. ZOVIRAX [Suspect]
     Indication: VARICELLA
     Dosage: 10 MG/KG/ INTRAVENOUS
     Route: 042
  2. VARICE, ZOSTER IMMUN GLOB [FORMULATION UNKNOWN) (VARICE, ZOSTER IMMUNE [Suspect]
     Indication: ANTIVIRAL PROPHYLAXIS
     Dosage: 1 GRAM(S) INTRAMUSCULAR
     Route: 030

REACTIONS (12)
  - ALANINE AMINOTRANSFERASE INCREASED [None]
  - ASPARTATE AMINOTRANSFERASE INCREASED [None]
  - CONTUSION [None]
  - DRUG INEFFECTIVE [None]
  - GENERAL PHYSICAL HEALTH DETERIORATION [None]
  - HAEMORRHAGE [None]
  - MULTI-ORGAN FAILURE [None]
  - MUSCULOSKELETAL CHEST PAIN [None]
  - RASH MACULO-PAPULAR [None]
  - RENAL FAILURE ACUTE [None]
  - VARICELLA [None]
  - VESSEL PUNCTURE SITE HAEMORRHAGE [None]
